FAERS Safety Report 4527925-0 (Version None)
Quarter: 2004Q4

REPORT INFORMATION
  Report Type: 
  Country: None (occurrence: None)
  Receive Date: 20041123
  Receipt Date: 20031002
  Transmission Date: 20050328
  Serious: Yes (Other)
  Sender: FDA-Public Use
  Company Number: 2003041601

PATIENT
  Age: 61 Year
  Sex: Female
  Weight: 61.2356 kg

DRUGS (4)
  1. LIPITOR [Suspect]
     Indication: ILL-DEFINED DISORDER
     Dosage: ORAL
     Route: 048
  2. NAPROXEN SODIUM [Concomitant]
     Indication: ARTHRITIS
     Dosage: 220 MG (PRN), ORAL
     Route: 048
     Dates: start: 20030601, end: 20030902
  3. ESOMEPRAZOLE (ESOMEPRAZOLE) [Concomitant]
  4. SINUS (BENZYDAMINE HYDROCHLORIDE, BROMHEXINE HYDROCHLORIDE, AMOXICILLI [Concomitant]

REACTIONS (1)
  - HEPATIC ENZYME INCREASED [None]
